FAERS Safety Report 11058836 (Version 1)
Quarter: 2015Q2

REPORT INFORMATION
  Report Type: Spontaneous
  Country: US (occurrence: None)
  Receive Date: 20150422
  Receipt Date: 20150422
  Transmission Date: 20150821
  Serious: Yes (Hospitalization, Other)
  Sender: FDA-Public Use
  Company Number: None

PATIENT
  Age: 22 Month
  Sex: Male
  Weight: 12.7 kg

DRUGS (2)
  1. FLUORIDE [Concomitant]
     Active Substance: SODIUM FLUORIDE
  2. TAMIFLU [Suspect]
     Active Substance: OSELTAMIVIR PHOSPHATE
     Indication: INFLUENZA
     Route: 048
     Dates: start: 20150306, end: 20150311

REACTIONS (3)
  - Vomiting [None]
  - Febrile convulsion [None]
  - Foaming at mouth [None]

NARRATIVE: CASE EVENT DATE: 20150306
